FAERS Safety Report 8915249 (Version 1)
Quarter: 2012Q4

REPORT INFORMATION
  Report Type: 
  Country: US (occurrence: US)
  Receive Date: 20121119
  Receipt Date: 20121119
  Transmission Date: 20130627
  Serious: No
  Sender: FDA-Public Use
  Company Number: US-PFIZER INC-2012283800

PATIENT
  Age: 65 Year
  Sex: Male
  Weight: 86 kg

DRUGS (4)
  1. TIKOSYN [Suspect]
     Indication: ATRIAL FIBRILLATION
     Dosage: 500 ug, 2x/day
     Dates: start: 20120707
  2. FLOMAX TAMSULOSIN [Concomitant]
     Indication: PROSTATIC DISORDER
     Dosage: Unknown dose; daily
  3. NORTRIPTYLINE [Concomitant]
     Dosage: 30 mg, daily
  4. CRESTOR [Concomitant]
     Indication: HEART DISORDER
     Dosage: Unknown dose; daily

REACTIONS (1)
  - Therapeutic response unexpected [Unknown]
